FAERS Safety Report 7324298-5 (Version None)
Quarter: 2011Q1

REPORT INFORMATION
  Report Type: 
  Country: None (occurrence: None)
  Receive Date: 20110202
  Receipt Date: 20101011
  Transmission Date: 20110831
  Serious: No
  Sender: FDA-Public Use
  Company Number: 2010-13578

PATIENT
  Age: 68 Year
  Sex: Male
  Weight: 80.7 kg

DRUGS (2)
  1. RAPAFLO [Suspect]
     Indication: BENIGN PROSTATIC HYPERPLASIA
     Dosage: 8 MG, DAILY, ORAL
     Route: 048
     Dates: start: 20101007
  2. LEVOXYL [Concomitant]

REACTIONS (1)
  - INSOMNIA [None]
